FAERS Safety Report 8181698 (Version 3)
Quarter: 2013Q2

REPORT INFORMATION
  Report Type: Spontaneous
  Country: US (occurrence: US)
  Receive Date: 20111014
  Receipt Date: 20130530
  Transmission Date: 20140414
  Serious: Yes (Other)
  Sender: FDA-Public Use
  Company Number: US-BAXTER-2011BH029496

PATIENT
  Age: 50 Year
  Sex: Female
  Weight: 66.28 kg

DRUGS (4)
  1. GAMMAGARD S/D : GAMMAGARD S/D_SOLVENT/DETERGENT TREATED_2.5G/VIAL_POWD [Suspect]
     Indication: SELECTIVE IGG SUBCLASS DEFICIENCY
     Route: 042
     Dates: start: 20110915
  2. GAMMAGARD S/D : GAMMAGARD S/D_SOLVENT/DETERGENT TREATED_2.5G/VIAL_POWD [Suspect]
     Indication: IMMUNODEFICIENCY COMMON VARIABLE
     Route: 065
     Dates: start: 1999
  3. MULTIVITAMINS [Concomitant]
     Indication: VITAMIN SUPPLEMENTATION
     Route: 048
  4. ZITHROMAX Z-PACK [Concomitant]
     Indication: SINUSITIS
     Route: 048
     Dates: start: 20110912, end: 20110916

REACTIONS (7)
  - Meningitis aseptic [Recovered/Resolved]
  - Chills [Recovered/Resolved]
  - Pain [Recovered/Resolved]
  - Pain in extremity [Recovered/Resolved]
  - Musculoskeletal stiffness [Recovered/Resolved]
  - Spinal pain [Recovered/Resolved]
  - Malaise [Recovered/Resolved]
